FAERS Safety Report 7277266-6 (Version None)
Quarter: 2011Q1

REPORT INFORMATION
  Report Type: 
  Country: None (occurrence: None)
  Receive Date: 20110202
  Receipt Date: 20110202
  Transmission Date: 20110831
  Serious: Yes (Other)
  Sender: FDA-Public Use
  Company Number: None

PATIENT
  Sex: Male
  Weight: 117.9352 kg

DRUGS (1)
  1. PREDNISONE TAB [Suspect]
     Dosage: 4 TAB X 3 DAYS, 3 TAB X 3 DAY PO ; 2 TAB X 3 DAY, 1 TAB X 3 DAY PO
     Route: 048
     Dates: start: 20110114, end: 20110126

REACTIONS (2)
  - THERAPEUTIC RESPONSE UNEXPECTED [None]
  - POLLAKIURIA [None]
